FAERS Safety Report 15474117 (Version 2)
Quarter: 2018Q4

REPORT INFORMATION
  Report Type: Report from Study
  Country: US (occurrence: US)
  Receive Date: 20181008
  Receipt Date: 20181224
  Transmission Date: 20190205
  Serious: Yes (Hospitalization, Other)
  Sender: FDA-Public Use
  Company Number: US-ROCHE-2190922

PATIENT
  Age: 63 Year
  Sex: Male

DRUGS (27)
  1. CRESTOR [Concomitant]
     Active Substance: ROSUVASTATIN CALCIUM
     Dosage: IN MORNING
     Route: 048
  2. VITAMIN D3 [Concomitant]
     Active Substance: CHOLECALCIFEROL
     Route: 048
  3. ANDRODERM [Concomitant]
     Active Substance: TESTOSTERONE
     Route: 065
     Dates: start: 20170822, end: 20180406
  4. ALBUTEROL. [Concomitant]
     Active Substance: ALBUTEROL
     Route: 065
     Dates: start: 20170822, end: 20180406
  5. ZESTRIL [Concomitant]
     Active Substance: LISINOPRIL
     Route: 048
     Dates: start: 20170822, end: 20180407
  6. ACYCLOVIR. [Concomitant]
     Active Substance: ACYCLOVIR
     Route: 048
     Dates: start: 20180106
  7. MARIJUANA [Concomitant]
     Active Substance: CANNABIS SATIVA SUBSP. INDICA TOP
     Route: 065
     Dates: start: 20180106
  8. LIPITOR [Concomitant]
     Active Substance: ATORVASTATIN CALCIUM
     Route: 048
     Dates: end: 20180406
  9. OCREVUS [Suspect]
     Active Substance: OCRELIZUMAB
     Indication: PRIMARY PROGRESSIVE MULTIPLE SCLEROSIS
     Route: 042
     Dates: start: 20170517, end: 20180515
  10. LIORESAL [Concomitant]
     Active Substance: BACLOFEN
     Route: 065
     Dates: start: 20170822, end: 20180406
  11. ANDRODERM [Concomitant]
     Active Substance: TESTOSTERONE
     Dosage: 4 MG/24 HR FILM, EXTENDED RELEASE 1 PATCH
     Route: 065
  12. ALBUTEROL. [Concomitant]
     Active Substance: ALBUTEROL
     Dosage: 1.25MG/3ML
     Route: 055
  13. COLACE [Concomitant]
     Active Substance: DOCUSATE SODIUM
     Route: 048
     Dates: start: 20170822, end: 20180406
  14. SOLU-MEDROL [Concomitant]
     Active Substance: METHYLPREDNISOLONE SODIUM SUCCINATE
     Route: 065
  15. CYMBALTA [Concomitant]
     Active Substance: DULOXETINE HYDROCHLORIDE
     Route: 048
     Dates: start: 20170822, end: 20180406
  16. MOTRIN [Concomitant]
     Active Substance: IBUPROFEN
     Route: 048
  17. AMPYRA [Concomitant]
     Active Substance: DALFAMPRIDINE
     Route: 048
     Dates: start: 20170822
  18. LASIX [Concomitant]
     Active Substance: FUROSEMIDE
     Route: 048
     Dates: start: 20170822
  19. SINGULAIR [Concomitant]
     Active Substance: MONTELUKAST SODIUM
     Dosage: EVERY EVENING
     Route: 048
     Dates: start: 20180106, end: 20180406
  20. NUVIGIL [Concomitant]
     Active Substance: ARMODAFINIL
     Route: 048
     Dates: start: 20170822
  21. IBUPROFEN. [Concomitant]
     Active Substance: IBUPROFEN
     Route: 048
  22. MACRODANTIN [Concomitant]
     Active Substance: NITROFURANTOIN
     Route: 048
  23. LOVENOX [Concomitant]
     Active Substance: ENOXAPARIN SODIUM
     Route: 058
     Dates: end: 20180406
  24. CRESTOR [Concomitant]
     Active Substance: ROSUVASTATIN CALCIUM
     Dosage: EVERY MORNING
     Route: 048
  25. LISINOPRIL. [Concomitant]
     Active Substance: LISINOPRIL
     Route: 048
     Dates: start: 20170822, end: 20180406
  26. MARINOL [Concomitant]
     Active Substance: DRONABINOL
     Indication: PAIN
     Route: 048
  27. TYLENOL [Concomitant]
     Active Substance: ACETAMINOPHEN
     Route: 048

REACTIONS (6)
  - Pneumonia [Recovered/Resolved]
  - Sepsis [Unknown]
  - Diverticulitis [Unknown]
  - Neurogenic bladder [Unknown]
  - Multiple sclerosis relapse [Unknown]
  - Blood cholesterol increased [Unknown]

NARRATIVE: CASE EVENT DATE: 20180106
